FAERS Safety Report 5150944-0 (Version None)
Quarter: 2006Q4

REPORT INFORMATION
  Report Type: 
  Country: None (occurrence: None)
  Receive Date: 20061115
  Receipt Date: 20061109
  Transmission Date: 20070319
  Serious: Yes (Other)
  Sender: FDA-Public Use
  Company Number: US-JNJFOC-20061102315

PATIENT
  Sex: Female
  Weight: 111.59 kg

DRUGS (3)
  1. REMICADE [Suspect]
  2. REMICADE [Suspect]
     Indication: RHEUMATOID ARTHRITIS
  3. UNSPECIFIED MEDICATION [Concomitant]

REACTIONS (1)
  - CORONARY ARTERIAL STENT INSERTION [None]
